FAERS Safety Report 14967120 (Version 1)
Quarter: 2018Q2

REPORT INFORMATION
  Report Type: Report from Study
  Country: SE (occurrence: SE)
  Receive Date: 20180604
  Receipt Date: 20180604
  Transmission Date: 20180711
  Serious: Yes (Death)
  Sender: FDA-Public Use
  Company Number: SE-CHEPLA-C20170413

PATIENT

DRUGS (1)
  1. ALL-TRANS RETINOIC ACID (ATRA) [Suspect]
     Active Substance: TRETINOIN
     Indication: ACUTE PROMYELOCYTIC LEUKAEMIA

REACTIONS (11)
  - Cardiac failure [Fatal]
  - Pulmonary haemorrhage [Fatal]
  - Sepsis [Fatal]
  - Multiple organ dysfunction syndrome [Fatal]
  - Cerebral infarction [Fatal]
  - Myocardial infarction [Fatal]
  - Haemorrhage intracranial [Fatal]
  - Acute promyelocytic leukaemia differentiation syndrome [Fatal]
  - Respiratory failure [Fatal]
  - Pulmonary embolism [Fatal]
  - Leukostasis syndrome [Fatal]
